FAERS Safety Report 20528277 (Version 1)
Quarter: 2022Q1

REPORT INFORMATION
  Report Type: Spontaneous
  Country: US (occurrence: None)
  Receive Date: 20220228
  Receipt Date: 20220228
  Transmission Date: 20220423
  Serious: Yes (Disabling, Other)
  Sender: FDA-Public Use
  Company Number: None

PATIENT
  Age: 5 Year
  Sex: Male
  Weight: 22.5 kg

DRUGS (7)
  1. NUTROPIN AQ [Suspect]
     Active Substance: SOMATROPIN
     Indication: Short stature
     Dates: start: 20190720, end: 20210618
  2. NORDITROPIN [Suspect]
     Active Substance: SOMATROPIN
  3. KEPPRA [Concomitant]
     Active Substance: LEVETIRACETAM
  4. LACOSAMIDE [Concomitant]
     Active Substance: LACOSAMIDE
  5. CLOBAZAM [Concomitant]
     Active Substance: CLOBAZAM
  6. DEXAMETHASONE [Concomitant]
     Active Substance: DEXAMETHASONE
  7. OSIMIRTINIB [Concomitant]

REACTIONS (1)
  - Malignant glioma [None]

NARRATIVE: CASE EVENT DATE: 20210618
